FAERS Safety Report 13876224 (Version 2)
Quarter: 2017Q3

REPORT INFORMATION
  Report Type: Spontaneous
  Country: US (occurrence: US)
  Receive Date: 20170817
  Receipt Date: 20170918
  Transmission Date: 20171127
  Serious: Yes (Hospitalization, Other)
  Sender: FDA-Public Use
  Company Number: US-CONCORDIA PHARMACEUTICALS INC.-E2B_00008313

PATIENT
  Age: 58 Year
  Sex: Male

DRUGS (2)
  1. PREDNISOLONE. [Suspect]
     Active Substance: PREDNISOLONE
  2. DEXAMETHASONE. [Suspect]
     Active Substance: DEXAMETHASONE
     Dosage: FOUR DAYS OF 40 MG EVERY THREE WEEKS

REACTIONS (2)
  - Mania [Recovered/Resolved]
  - Substance-induced psychotic disorder [Recovered/Resolved]
